FAERS Safety Report 8322281-4 (Version None)
Quarter: 2012Q2

REPORT INFORMATION
  Report Type: 
  Country: None (occurrence: None)
  Receive Date: 20120430
  Receipt Date: 20120420
  Transmission Date: 20120825
  Serious: Yes (Hospitalization)
  Sender: FDA-Public Use
  Company Number: PHHY2012ES033877

PATIENT
  Age: 69 Year
  Sex: Female

DRUGS (2)
  1. CERTICAN [Suspect]
     Indication: LUNG TRANSPLANT
     Dosage: DAILY DOSE
     Route: 048
     Dates: start: 20070701
  2. MYCOPHENOLATE MOFETIL (CELLCEPT) [Suspect]
     Indication: LUNG TRANSPLANT
     Dosage: DAILY DOSE
     Route: 048
     Dates: start: 20070701

REACTIONS (4)
  - HYPOKALAEMIA [None]
  - LYMPHOEDEMA [None]
  - RENAL FAILURE CHRONIC [None]
  - OEDEMA PERIPHERAL [None]
